FAERS Safety Report 11839221 (Version 1)
Quarter: 2015Q4

REPORT INFORMATION
  Report Type: Spontaneous
  Country: US (occurrence: US)
  Receive Date: 20151216
  Receipt Date: 20151216
  Transmission Date: 20160305
  Serious: No
  Sender: FDA-Public Use
  Company Number: US-TEVA-576395USA

PATIENT
  Sex: Female

DRUGS (2)
  1. DILTIAZEM [Suspect]
     Active Substance: DILTIAZEM
     Indication: ATRIAL FIBRILLATION
  2. DILTIAZEM [Suspect]
     Active Substance: DILTIAZEM
     Indication: ANGINA UNSTABLE
     Dosage: 120 MG 7:30 AM, 60MG 3:30 PM AND 120MG AT 11:30 PM
     Dates: start: 2011

REACTIONS (1)
  - Bradycardia [Unknown]

NARRATIVE: CASE EVENT DATE: 2015
